FAERS Safety Report 25069130 (Version 3)
Quarter: 2025Q2

REPORT INFORMATION
  Report Type: Report from Study
  Country: CA (occurrence: CA)
  Receive Date: 20250312
  Receipt Date: 20250526
  Transmission Date: 20250717
  Serious: Yes (Hospitalization, Other)
  Sender: TAKEDA
  Company Number: CA-TAKEDA-2025TUS022305

PATIENT
  Age: 65 Year
  Sex: Male

DRUGS (3)
  1. VEDOLIZUMAB [Suspect]
     Active Substance: VEDOLIZUMAB
     Indication: Crohn^s disease
  2. MESALAMINE [Concomitant]
     Active Substance: MESALAMINE
  3. Rofact [Concomitant]

REACTIONS (9)
  - Amnesia [Unknown]
  - Cerebral disorder [Unknown]
  - Anxiety [Unknown]
  - Incontinence [Unknown]
  - Petit mal epilepsy [Unknown]
  - Confusional state [Unknown]
  - Urinary incontinence [Unknown]
  - Nausea [Unknown]
  - Fatigue [Unknown]

NARRATIVE: CASE EVENT DATE: 20250224
